FAERS Safety Report 4344251-3 (Version None)
Quarter: 2004Q2

REPORT INFORMATION
  Report Type: 
  Country: None (occurrence: None)
  Receive Date: 20040419
  Receipt Date: 20040311
  Transmission Date: 20050107
  Serious: Yes (Life-Threatening)
  Sender: FDA-Public Use
  Company Number: F04200400067

PATIENT
  Age: 66 Year
  Sex: Male

DRUGS (5)
  1. ARIXTRA [Suspect]
     Indication: HIP ARTHROPLASTY
     Dosage: 2.5 MG OD
     Route: 058
     Dates: start: 20021111, end: 20021112
  2. ARIXTRA [Suspect]
     Indication: THROMBOSIS PROPHYLAXIS
     Dosage: 2.5 MG OD
     Route: 058
     Dates: start: 20021111, end: 20021112
  3. NEBILET (NEBIVOLOL HYDROCHLORIDE) [Concomitant]
  4. VITAFERRO (FERROUS SULFATE) [Concomitant]
  5. INDOMET (INDOMETACIN) [Concomitant]

REACTIONS (1)
  - ACUTE MYOCARDIAL INFARCTION [None]
